FAERS Safety Report 10151387 (Version 1)
Quarter: 2014Q2

REPORT INFORMATION
  Report Type: Spontaneous
  Country: PH (occurrence: PH)
  Receive Date: 20140504
  Receipt Date: 20140504
  Transmission Date: 20141212
  Serious: Yes (Hospitalization, Other)
  Sender: FDA-Public Use
  Company Number: PH-009507513-1404PHL015666

PATIENT
  Age: 56 Year
  Sex: Female

DRUGS (5)
  1. JANUMET [Suspect]
     Dosage: ONE TABLET, BID
     Route: 048
     Dates: start: 2013
  2. GLIMEPIRIDE [Concomitant]
     Dosage: UNK
     Route: 048
  3. SOLOSA [Concomitant]
     Dosage: UNK
     Route: 048
  4. LIPITOR [Concomitant]
     Route: 048
  5. INSULIN [Concomitant]

REACTIONS (1)
  - VIIth nerve paralysis [Recovered/Resolved]
